FAERS Safety Report 10564154 (Version 1)
Quarter: 2014Q4

REPORT INFORMATION
  Report Type: Spontaneous
  Country: US (occurrence: US)
  Receive Date: 20141104
  Receipt Date: 20141104
  Transmission Date: 20150529
  Serious: Yes (Other)
  Sender: FDA-Public Use
  Company Number: US-TEVA-520007USA

PATIENT
  Sex: Male

DRUGS (2)
  1. TREANDA [Suspect]
     Active Substance: BENDAMUSTINE HYDROCHLORIDE
  2. BRENTUXIMAB [Concomitant]
     Active Substance: BRENTUXIMAB VEDOTIN

REACTIONS (4)
  - Hypotension [Unknown]
  - Cardio-respiratory arrest [Unknown]
  - Systemic inflammatory response syndrome [Unknown]
  - Fluid retention [Unknown]
